FAERS Safety Report 8919779 (Version 2)
Quarter: 2012Q4

REPORT INFORMATION
  Report Type: 
  Country: JP (occurrence: JP)
  Receive Date: 20121121
  Receipt Date: 20121126
  Transmission Date: 20130627
  Serious: No
  Sender: FDA-Public Use
  Company Number: JP-JNJFOC-20121106886

PATIENT

DRUGS (1)
  1. DUROTEP MT [Suspect]
     Indication: PAIN
     Dosage: two 100 ug/hr patches
     Route: 062

REACTIONS (2)
  - Inadequate analgesia [Unknown]
  - Incorrect drug administration duration [Unknown]
